FAERS Safety Report 25114727 (Version 1)
Quarter: 2025Q1

REPORT INFORMATION
  Report Type: Spontaneous
  Country: US (occurrence: US)
  Receive Date: 20250324
  Receipt Date: 20250324
  Transmission Date: 20250408
  Serious: Yes (Disabling)
  Sender: PFIZER
  Company Number: US-PFIZER INC-202500063141

PATIENT
  Age: 61 Year
  Sex: Male
  Weight: 62.585 kg

DRUGS (1)
  1. INLYTA [Suspect]
     Active Substance: AXITINIB
     Dosage: 5 MG, 2X/DAY (EVERY 12 HOURS, AT EVENLY SPACED INTERVALS, WITH OR WITHOUT FOOD, WITH A FULL GLASS OF
     Route: 048
     Dates: start: 20250317

REACTIONS (1)
  - Borderline personality disorder [Unknown]
